FAERS Safety Report 12167671 (Version 4)
Quarter: 2016Q2

REPORT INFORMATION
  Report Type: Report from Study
  Country: AR (occurrence: AR)
  Receive Date: 20160310
  Receipt Date: 20160407
  Transmission Date: 20160815
  Serious: Yes (Hospitalization, Other)
  Sender: FDA-Public Use
  Company Number: PHHY2016AR016508

PATIENT
  Age: 57 Year
  Sex: Female

DRUGS (3)
  1. INSULIN [Concomitant]
     Active Substance: INSULIN NOS
     Indication: PRODUCT USED FOR UNKNOWN INDICATION
     Dosage: UNK
     Route: 065
  2. GALVUS MET [Suspect]
     Active Substance: METFORMIN HYDROCHLORIDE\VILDAGLIPTIN
     Indication: DIABETES MELLITUS
     Dosage: 50/850 (UNITS NOT PROVIDED)
     Route: 065
     Dates: start: 2013
  3. DIOVAN [Suspect]
     Active Substance: VALSARTAN
     Indication: HYPERTENSION
     Dosage: 160 (UNITS NOT PROVIDED), BID (1 IN MORNING, 1 IN EVENING)
     Route: 065
     Dates: start: 201503, end: 201509

REACTIONS (9)
  - Metabolic syndrome [Recovered/Resolved]
  - Haematemesis [Recovered/Resolved]
  - Muscle atrophy [Recovered/Resolved]
  - Pneumonia [Recovered/Resolved]
  - Coma [Recovered/Resolved]
  - Intestinal haemorrhage [Recovered/Resolved]
  - Abasia [Recovered/Resolved]
  - Respiratory failure [Recovered/Resolved]
  - Asthma [Unknown]

NARRATIVE: CASE EVENT DATE: 20150307
